FAERS Safety Report 9320351 (Version 1)
Quarter: 2013Q2

REPORT INFORMATION
  Report Type: Spontaneous
  Country: US (occurrence: US)
  Receive Date: 20130530
  Receipt Date: 20130530
  Transmission Date: 20140414
  Serious: Yes (Other)
  Sender: FDA-Public Use
  Company Number: US-B.I. PHARMACEUTICALS,INC./RIDGEFIELD-2013-BI-14438BP

PATIENT
  Sex: Female

DRUGS (2)
  1. PRADAXA [Suspect]
     Indication: CARDIAC FLUTTER
  2. DIURETICS [Concomitant]

REACTIONS (7)
  - Heart rate decreased [Unknown]
  - Urinary tract infection [Unknown]
  - Blood urine present [Unknown]
  - Urticaria [Unknown]
  - Heart valve incompetence [Unknown]
  - Abdominal distension [Unknown]
  - Dyspnoea [Unknown]
